FAERS Safety Report 18243115 (Version 4)
Quarter: 2020Q4

REPORT INFORMATION
  Report Type: Report from Study
  Country: US (occurrence: US)
  Receive Date: 20200908
  Receipt Date: 20201009
  Transmission Date: 20210113
  Serious: Yes (Hospitalization)
  Sender: FDA-Public Use
  Company Number: US-JNJFOC-A-NJ2020-208499

PATIENT
  Age: 57 Year
  Sex: Female
  Weight: 100.33 kg

DRUGS (5)
  1. UPTRAVI [Suspect]
     Active Substance: SELEXIPAG
     Indication: PULMONARY ARTERIAL HYPERTENSION
     Dosage: 1600 MCG, BID
     Route: 048
  2. VELETRI [Suspect]
     Active Substance: EPOPROSTENOL
     Indication: PULMONARY ARTERIAL HYPERTENSION
     Route: 042
  3. VELETRI [Suspect]
     Active Substance: EPOPROSTENOL
     Route: 042
  4. ELIQUIS [Concomitant]
     Active Substance: APIXABAN
  5. SILDENAFIL CITRATE. [Concomitant]
     Active Substance: SILDENAFIL CITRATE

REACTIONS (27)
  - Abdominal discomfort [Unknown]
  - Throat irritation [Unknown]
  - Taste disorder [Unknown]
  - Joint stiffness [Unknown]
  - Trismus [Recovering/Resolving]
  - Panic attack [Unknown]
  - Pain [Unknown]
  - Functional gastrointestinal disorder [Recovering/Resolving]
  - Upper-airway cough syndrome [Unknown]
  - Catheter site erythema [Unknown]
  - Nausea [Recovering/Resolving]
  - Panic disorder [Unknown]
  - Constipation [Unknown]
  - Tremor [Unknown]
  - Fatigue [Unknown]
  - Weight increased [Unknown]
  - Sinus disorder [Unknown]
  - Pain in jaw [Unknown]
  - Eating disorder [Recovering/Resolving]
  - Therapy change [Recovered/Resolved]
  - Anxiety [Unknown]
  - Muscle contractions involuntary [Unknown]
  - Diarrhoea [Unknown]
  - Headache [Unknown]
  - Abdominal pain [Unknown]
  - Nasal discomfort [Unknown]
  - Seasonal allergy [Unknown]
